FAERS Safety Report 13922801 (Version 1)
Quarter: 2017Q3

REPORT INFORMATION
  Report Type: Spontaneous
  Country: US (occurrence: US)
  Receive Date: 20170830
  Receipt Date: 20170830
  Transmission Date: 20171127
  Serious: Yes (Other)
  Sender: FDA-Public Use
  Company Number: US-CELGENEUS-USA-20170807158

PATIENT
  Age: 56 Year
  Sex: Female
  Weight: 91 kg

DRUGS (1)
  1. OTEZLA [Suspect]
     Active Substance: APREMILAST
     Indication: PSORIASIS
     Dosage: 10-20MG
     Route: 048
     Dates: start: 20170812, end: 20170814

REACTIONS (3)
  - Hypersensitivity [Recovered/Resolved]
  - Tension headache [Recovered/Resolved]
  - Hypertension [Recovered/Resolved]

NARRATIVE: CASE EVENT DATE: 201708
